FAERS Safety Report 7254100-1 (Version None)
Quarter: 2011Q1

REPORT INFORMATION
  Report Type: 
  Country: None (occurrence: None)
  Receive Date: 20110129
  Receipt Date: 20100420
  Transmission Date: 20110831
  Serious: No
  Sender: FDA-Public Use
  Company Number: US-ABBOTT-10P-163-0640391-00

PATIENT
  Sex: Female
  Weight: 65.83 kg

DRUGS (10)
  1. METHOTREXATE [Concomitant]
     Indication: RHEUMATOID ARTHRITIS
  2. PREDNISONE [Concomitant]
     Indication: RHEUMATOID ARTHRITIS
  3. ESTRADIOL [Concomitant]
     Indication: HYSTERECTOMY
  4. MOBIC [Concomitant]
     Indication: RHEUMATOID ARTHRITIS
  5. HUMIRA [Suspect]
     Indication: RHEUMATOID ARTHRITIS
     Dates: start: 20100101, end: 20100414
  6. BENICAR [Concomitant]
     Indication: HYPERTENSION
  7. MULTIVITAMIN [Concomitant]
     Indication: PRODUCT USED FOR UNKNOWN INDICATION
  8. ALLERGY SHOTS [Concomitant]
     Indication: PRODUCT USED FOR UNKNOWN INDICATION
  9. PAXIL [Concomitant]
     Indication: ANXIETY
  10. PROMETRIUM [Concomitant]
     Indication: HYSTERECTOMY

REACTIONS (2)
  - DRUG INEFFECTIVE [None]
  - PAIN [None]
